FAERS Safety Report 6666775-6 (Version None)
Quarter: 2010Q2

REPORT INFORMATION
  Report Type: 
  Country: None (occurrence: None)
  Receive Date: 20100405
  Receipt Date: 20100329
  Transmission Date: 20101027
  Serious: Yes (Life-Threatening, Hospitalization)
  Sender: FDA-Public Use
  Company Number: JP-ASTRAZENECA-2010SE06744

PATIENT
  Age: 24092 Day
  Sex: Female
  Weight: 54.4 kg

DRUGS (10)
  1. SEROQUEL [Suspect]
     Indication: SCHIZOPHRENIA
     Route: 048
     Dates: start: 20020101, end: 20020212
  2. SEROQUEL [Suspect]
     Route: 048
     Dates: start: 20020624, end: 20100203
  3. PURSENIDE [Concomitant]
     Indication: CONSTIPATION
     Route: 048
     Dates: start: 20020212, end: 20100203
  4. GASCON [Concomitant]
     Indication: ABDOMINAL DISTENSION
     Route: 048
     Dates: start: 20020212, end: 20100203
  5. BLADDERON [Concomitant]
     Indication: DYSURIA
     Route: 048
     Dates: start: 20020212, end: 20100203
  6. ALESION [Concomitant]
     Indication: RHINITIS ALLERGIC
     Route: 048
     Dates: start: 20050118, end: 20100203
  7. GASMOTIN [Concomitant]
  8. ZYPREXA [Concomitant]
     Dates: start: 20020212, end: 20020419
  9. RISPERDAL [Concomitant]
     Dates: start: 20020419, end: 20020624
  10. FERROMIA [Concomitant]
     Indication: ANAEMIA
     Dates: start: 20050408, end: 20060706

REACTIONS (1)
  - HAEMATEMESIS [None]
